FAERS Safety Report 5381090-9 (Version None)
Quarter: 2007Q3

REPORT INFORMATION
  Report Type: 
  Country: None (occurrence: None)
  Receive Date: 20070706
  Receipt Date: 20070625
  Transmission Date: 20080115
  Serious: Yes (Hospitalization, Other)
  Sender: FDA-Public Use
  Company Number: DE-PFIZER INC-2007025910

PATIENT
  Sex: Male
  Weight: 126 kg

DRUGS (5)
  1. SUTENT [Suspect]
     Indication: RENAL CELL CARCINOMA STAGE UNSPECIFIED
     Dosage: DAILY DOSE:50MG
     Route: 048
  2. CHEMOTHERAPY NOS [Concomitant]
  3. BELOC-ZOC COMP [Concomitant]
     Route: 048
  4. AMARYL [Concomitant]
     Route: 048
  5. LASIX [Concomitant]
     Route: 048

REACTIONS (4)
  - GASTROINTESTINAL FISTULA [None]
  - ILEUS [None]
  - IMPAIRED HEALING [None]
  - WOUND INFECTION [None]
